FAERS Safety Report 23982585 (Version 1)
Quarter: 2024Q2

REPORT INFORMATION
  Report Type: Spontaneous
  Country: ES (occurrence: None)
  Receive Date: 20240617
  Receipt Date: 20240617
  Transmission Date: 20240715
  Serious: Yes (Other)
  Sender: FDA-Public Use
  Company Number: 2024A138953

PATIENT
  Age: 79 Year
  Sex: Male

DRUGS (6)
  1. CRESTOR [Suspect]
     Active Substance: ROSUVASTATIN CALCIUM
     Indication: Dyslipidaemia
     Dosage: 5 MILLIGRAM, 1/DAY
     Route: 048
     Dates: start: 20240322, end: 20240517
  2. SOLUDRONATE SEMANAL [Concomitant]
     Dosage: 1 DOSAGE FORM, 1/WEEK
     Route: 048
     Dates: start: 20240201
  3. IMMUFALK [Concomitant]
     Dosage: 100 MILLIGRAM, 1/DAY
     Route: 048
     Dates: start: 20240201
  4. HYDROCHLOROTHIAZIDE\TELMISARTAN [Concomitant]
     Active Substance: HYDROCHLOROTHIAZIDE\TELMISARTAN
     Indication: Hypertension
     Dosage: 1 DOSAGE FORM, 1/DAY
     Route: 048
     Dates: start: 20120320
  5. PREDNISONE [Concomitant]
     Active Substance: PREDNISONE
     Dosage: 5 MILLIGRAM, 1/DAY
     Route: 048
     Dates: start: 20240331
  6. SULFAMETHOXAZOLE\TRIMETHOPRIM [Concomitant]
     Active Substance: SULFAMETHOXAZOLE\TRIMETHOPRIM
     Dosage: 1 DOSAGE FORM, EVERY 2 DAYS
     Route: 048
     Dates: start: 20240201

REACTIONS (1)
  - Hepatitis cholestatic [Unknown]

NARRATIVE: CASE EVENT DATE: 20240513
